FAERS Safety Report 24188173 (Version 1)
Quarter: 2024Q3

REPORT INFORMATION
  Report Type: Spontaneous
  Country: IT (occurrence: IT)
  Receive Date: 20240808
  Receipt Date: 20240808
  Transmission Date: 20241016
  Serious: Yes (Other)
  Sender: MYLAN
  Company Number: IT-MYLANLABS-2024M1072752

PATIENT
  Age: 9 Year
  Sex: Male

DRUGS (1)
  1. PREDNISONE [Suspect]
     Active Substance: PREDNISONE
     Indication: Nephrotic syndrome
     Dosage: 60 MILLIGRAM/SQ. METER
     Route: 048

REACTIONS (1)
  - Therapy non-responder [Unknown]
